FAERS Safety Report 12964941 (Version 1)
Quarter: 2016Q4

REPORT INFORMATION
  Report Type: Spontaneous
  Country: US (occurrence: US)
  Receive Date: 20161122
  Receipt Date: 20161122
  Transmission Date: 20170207
  Serious: No
  Sender: FDA-Public Use
  Company Number: US-ALLERGAN-1671599US

PATIENT
  Sex: Female

DRUGS (1)
  1. KYBELLA [Suspect]
     Active Substance: DEOXYCHOLIC ACID
     Indication: LIPOMA
     Dosage: UNK UNK, SINGLE
     Route: 058

REACTIONS (6)
  - Off label use [Unknown]
  - Skin atrophy [Not Recovered/Not Resolved]
  - Skin hyperpigmentation [Not Recovered/Not Resolved]
  - Skin disorder [Not Recovered/Not Resolved]
  - Spider vein [Not Recovered/Not Resolved]
  - Drug ineffective for unapproved indication [Unknown]
